FAERS Safety Report 8044164-X (Version None)
Quarter: 2012Q1

REPORT INFORMATION
  Report Type: 
  Country: None (occurrence: None)
  Receive Date: 20120113
  Receipt Date: 20120104
  Transmission Date: 20120608
  Serious: Yes (Hospitalization)
  Sender: FDA-Public Use
  Company Number: IT-BRISTOL-MYERS SQUIBB COMPANY-16330706

PATIENT
  Age: 68 Year
  Sex: Female

DRUGS (7)
  1. LASIX [Concomitant]
  2. SPIRIVA [Concomitant]
  3. LANOXIN [Concomitant]
  4. BISOPROLOL FUMARATE [Concomitant]
  5. RANIDIL [Concomitant]
  6. KANRENOL [Concomitant]
  7. COUMADIN [Suspect]
     Indication: ATRIAL FIBRILLATION
     Dosage: DRUG INTERRUPTED ON 18-DEC-2011
     Dates: start: 20110101

REACTIONS (4)
  - INTESTINAL HAEMORRHAGE [None]
  - IRON DEFICIENCY ANAEMIA [None]
  - ACTIVATED PARTIAL THROMBOPLASTIN TIME PROLONGED [None]
  - RENAL FAILURE CHRONIC [None]
